FAERS Safety Report 7375269-4 (Version None)
Quarter: 2011Q1

REPORT INFORMATION
  Report Type: 
  Country: None (occurrence: None)
  Receive Date: 20110325
  Receipt Date: 20110314
  Transmission Date: 20110831
  Serious: Yes (Hospitalization, Other)
  Sender: FDA-Public Use
  Company Number: US-ACTELION-A-NJ2008-23158

PATIENT

DRUGS (15)
  1. TRACLEER [Suspect]
     Indication: PULMONARY ARTERIAL HYPERTENSION
     Dosage: UNK
     Route: 048
     Dates: start: 20100726
  2. TRACLEER [Suspect]
     Dosage: 62.5 MG, BID
     Route: 048
     Dates: start: 20081101, end: 20090601
  3. PROTONIX [Concomitant]
  4. METOPROLOL [Concomitant]
  5. TRACLEER [Suspect]
     Route: 048
     Dates: start: 20090101, end: 20090929
  6. VYTORIN [Concomitant]
  7. LASIX [Concomitant]
  8. IMDUR [Concomitant]
  9. DIOVAN [Concomitant]
  10. IRON SULFATETHIAMIN COMPOUND TAB [Concomitant]
  11. COUMADIN [Concomitant]
  12. COLCHICINE [Concomitant]
  13. NORVASC [Concomitant]
  14. LOMOTIL [Concomitant]
  15. NEURONTIN [Concomitant]

REACTIONS (8)
  - RASH GENERALISED [None]
  - PRURITUS [None]
  - RENAL FAILURE ACUTE [None]
  - DIALYSIS [None]
  - HYPERKALAEMIA [None]
  - CARDIAC FAILURE CONGESTIVE [None]
  - FATIGUE [None]
  - PNEUMONIA [None]
